FAERS Safety Report 13090845 (Version 1)
Quarter: 2017Q1

REPORT INFORMATION
  Report Type: Spontaneous
  Country: CN (occurrence: CN)
  Receive Date: 20170106
  Receipt Date: 20170106
  Transmission Date: 20170428
  Serious: Yes (Death, Other)
  Sender: FDA-Public Use
  Company Number: PHHY2017CN000765

PATIENT

DRUGS (5)
  1. SANDIMMUN [Suspect]
     Active Substance: CYCLOSPORINE
     Indication: STEM CELL TRANSPLANT
     Dosage: 125 MG, QD, INFUSION CONCENTRATION: 250MG:5ML/VIAL
     Route: 042
  2. CICLOSPORIN [Suspect]
     Active Substance: CYCLOSPORINE
     Indication: IMMUNOSUPPRESSANT DRUG THERAPY
  3. DIFLUCAN [Suspect]
     Active Substance: FLUCONAZOLE
     Indication: INFECTION
     Dosage: 0.1 G, QD
     Route: 065
  4. SANDIMMUN [Suspect]
     Active Substance: CYCLOSPORINE
     Indication: IMMUNOSUPPRESSANT DRUG THERAPY
  5. CICLOSPORIN [Suspect]
     Active Substance: CYCLOSPORINE
     Indication: STEM CELL TRANSPLANT
     Dosage: 125 MG, Q12H
     Route: 048

REACTIONS (9)
  - Oral pain [Unknown]
  - Pyrexia [Fatal]
  - Pneumonia fungal [Fatal]
  - Rales [Fatal]
  - Breath sounds abnormal [Fatal]
  - Mouth ulceration [Unknown]
  - Pleural effusion [Unknown]
  - Respiratory failure [Fatal]
  - Immunosuppressant drug level increased [Unknown]
